FAERS Safety Report 19170393 (Version 1)
Quarter: 2021Q2

REPORT INFORMATION
  Report Type: Report from Study
  Country: IL (occurrence: IL)
  Receive Date: 20210422
  Receipt Date: 20210422
  Transmission Date: 20210717
  Serious: Yes (Hospitalization)
  Sender: FDA-Public Use
  Company Number: IL-TAKEDA-2021TUS025300

PATIENT
  Age: 34 Year
  Sex: Male

DRUGS (1)
  1. VELAGLUCERASE ALFA [Suspect]
     Active Substance: VELAGLUCERASE ALFA
     Indication: GAUCHER^S DISEASE
     Dosage: 60 U/KG, Q2WEEKS
     Route: 065
     Dates: start: 20180614, end: 20200513

REACTIONS (1)
  - Parathyroid disorder [Recovered/Resolved]

NARRATIVE: CASE EVENT DATE: 20210418
